FAERS Safety Report 4351392-3 (Version None)
Quarter: 2004Q2

REPORT INFORMATION
  Report Type: 
  Country: None (occurrence: None)
  Receive Date: 20040428
  Receipt Date: 20040408
  Transmission Date: 20050107
  Serious: Yes (Hospitalization)
  Sender: FDA-Public Use
  Company Number: US_021290382

PATIENT
  Age: 73 Year
  Sex: Male
  Weight: 66 kg

DRUGS (3)
  1. PEMETREXED (LY231514) [Suspect]
     Indication: MESOTHELIOMA
     Dosage: 500 MG/M2 OTHER
     Dates: start: 20021112
  2. CISPLATIN [Suspect]
     Indication: MESOTHELIOMA
     Dosage: 75 MG/M2 OTHER
     Dates: start: 20021112
  3. MULTIVITAMIN [Concomitant]

REACTIONS (8)
  - BRADYCARDIA [None]
  - CEREBRAL ISCHAEMIA [None]
  - EYE PAIN [None]
  - FEELING HOT [None]
  - HYPERHIDROSIS [None]
  - NAUSEA [None]
  - PLEURAL EFFUSION [None]
  - VOMITING [None]
